FAERS Safety Report 15575279 (Version 3)
Quarter: 2019Q2

REPORT INFORMATION
  Report Type: Report from Study
  Country: US (occurrence: US)
  Receive Date: 20181101
  Receipt Date: 20190412
  Transmission Date: 20190711
  Serious: Yes (Other)
  Sender: FDA-Public Use
  Company Number: US-JNJFOC-20181044484

PATIENT
  Sex: Male

DRUGS (17)
  1. SOTALOL HCL [Concomitant]
     Active Substance: SOTALOL
  2. FUROSEMIDE. [Concomitant]
     Active Substance: FUROSEMIDE
  3. PREDNISONE. [Concomitant]
     Active Substance: PREDNISONE
  4. IMBRUVICA [Suspect]
     Active Substance: IBRUTINIB
     Indication: WALDENSTROM^S MACROGLOBULINAEMIA
     Route: 048
     Dates: start: 20190226
  5. FERROUS SULFATE. [Concomitant]
     Active Substance: FERROUS SULFATE
  6. RAMIPRIL. [Concomitant]
     Active Substance: RAMIPRIL
  7. BICALUTAMIDE. [Concomitant]
     Active Substance: BICALUTAMIDE
  8. ZYTIGA [Concomitant]
     Active Substance: ABIRATERONE ACETATE
  9. PANTOPRAZOLE SODIUM. [Concomitant]
     Active Substance: PANTOPRAZOLE SODIUM
  10. TAMSULOSIN HCL [Concomitant]
     Active Substance: TAMSULOSIN HYDROCHLORIDE
  11. ELIQUIS [Suspect]
     Active Substance: APIXABAN
     Indication: PRODUCT USED FOR UNKNOWN INDICATION
     Route: 065
  12. IMBRUVICA [Suspect]
     Active Substance: IBRUTINIB
     Indication: WALDENSTROM^S MACROGLOBULINAEMIA
     Route: 048
     Dates: start: 20180405, end: 2018
  13. METOPROLOL SUCCINATE. [Concomitant]
     Active Substance: METOPROLOL SUCCINATE
  14. MYRBETRIQ [Concomitant]
     Active Substance: MIRABEGRON
  15. TRAMADOL HCL [Concomitant]
     Active Substance: TRAMADOL HYDROCHLORIDE
  16. ALLOPURINOL. [Concomitant]
     Active Substance: ALLOPURINOL
  17. DOXYCYCLINE HYCLATE. [Concomitant]
     Active Substance: DOXYCYCLINE HYCLATE

REACTIONS (9)
  - Fall [Recovering/Resolving]
  - Internal haemorrhage [Recovered/Resolved]
  - Joint swelling [Unknown]
  - Joint injury [Recovering/Resolving]
  - Hernia [Not Recovered/Not Resolved]
  - Impaired healing [Unknown]
  - Wound haemorrhage [Unknown]
  - Peripheral swelling [Unknown]
  - Paraesthesia [Unknown]

NARRATIVE: CASE EVENT DATE: 2018
